FAERS Safety Report 9527790 (Version 1)
Quarter: 2013Q3

REPORT INFORMATION
  Report Type: Report from Study
  Country: US (occurrence: US)
  Receive Date: 20130917
  Receipt Date: 20130917
  Transmission Date: 20140515
  Serious: Yes (Hospitalization)
  Sender: FDA-Public Use
  Company Number: US-ROCHE-1275047

PATIENT
  Sex: Female

DRUGS (7)
  1. PEGASYS [Suspect]
     Indication: HEPATITIS C
     Dosage: 180MCG/0.5ML
     Route: 058
     Dates: start: 20130607
  2. COPEGUS [Suspect]
     Indication: HEPATITIS C
     Dosage: DEA BR9439096
     Route: 048
  3. COPEGUS [Suspect]
     Dosage: STARTED AFTER HOSPITALIZATION ON 30/AUG/2013
     Route: 048
  4. INCIVEK [Suspect]
     Indication: HEPATITIS C
     Dosage: WITH FOOD
     Route: 048
     Dates: end: 20130830
  5. ATIVAN [Concomitant]
     Indication: ANXIETY
     Route: 065
  6. LORTAB [Concomitant]
     Indication: PAIN
     Dosage: .5 AS NEEDED
     Route: 065
  7. SOMA (UNITED STATES) [Concomitant]
     Indication: MUSCLE SPASMS
     Dosage: AS NEEDED
     Route: 065

REACTIONS (8)
  - Blood iron decreased [Recovering/Resolving]
  - Haematochezia [Recovered/Resolved]
  - Asthenia [Recovered/Resolved]
  - Fatigue [Recovered/Resolved]
  - Dizziness [Recovered/Resolved]
  - Dizziness [Not Recovered/Not Resolved]
  - Sneezing [Not Recovered/Not Resolved]
  - Nausea [Recovered/Resolved]
